FAERS Safety Report 5957772-4 (Version None)
Quarter: 2008Q4

REPORT INFORMATION
  Report Type: 
  Country: None (occurrence: None)
  Receive Date: 20081117
  Receipt Date: 20081031
  Transmission Date: 20090506
  Serious: Yes (Hospitalization)
  Sender: FDA-Public Use
  Company Number: DSA_32566_2008

PATIENT
  Sex: Female

DRUGS (2)
  1. TAVOR/00273201/1 MG (NOT SPECIFIED) [Suspect]
     Dosage: 20 MG QD,NOT THE PRESCRIBED AMOUNT ORAL; 0.5 MG QD ORAL
     Route: 048
     Dates: start: 20081017, end: 20081017
  2. SEROQUEL [Suspect]
     Dosage: A FEW TABLETS, NOT THE PRESCRIBED AMOUNT
     Dates: start: 20081017, end: 20081017

REACTIONS (8)
  - BRADYCARDIA [None]
  - COMA [None]
  - DEHYDRATION [None]
  - INTENTIONAL OVERDOSE [None]
  - SOMNOLENCE [None]
  - SUICIDE ATTEMPT [None]
  - SUPRAVENTRICULAR EXTRASYSTOLES [None]
  - UNRESPONSIVE TO STIMULI [None]
